FAERS Safety Report 6512412-0 (Version None)
Quarter: 2009Q4

REPORT INFORMATION
  Report Type: 
  Country: None (occurrence: None)
  Receive Date: 20091222
  Receipt Date: 20091218
  Transmission Date: 20100525
  Serious: Yes (Other)
  Sender: FDA-Public Use
  Company Number: UG-GILEAD-2009-0026091

PATIENT
  Age: 30 Year
  Sex: Female

DRUGS (2)
  1. VIREAD [Suspect]
     Indication: HIV INFECTION
     Route: 048
     Dates: start: 20051028
  2. LAMIVUDINE + ZIDOVUDINE [Suspect]
     Route: 048
     Dates: start: 20051028

REACTIONS (1)
  - STILLBIRTH [None]
